FAERS Safety Report 12340214 (Version 1)
Quarter: 2016Q2

REPORT INFORMATION
  Report Type: Spontaneous
  Country: US (occurrence: US)
  Receive Date: 20160506
  Receipt Date: 20160506
  Transmission Date: 20160815
  Serious: No
  Sender: FDA-Public Use
  Company Number: US-TEVA-552868USA

PATIENT
  Age: 60 Year
  Sex: Female

DRUGS (3)
  1. LOSARTAN. [Suspect]
     Active Substance: LOSARTAN
     Indication: HYPERTENSION
     Route: 065
     Dates: start: 20150116
  2. PANTOPRAZOLE [Concomitant]
     Active Substance: PANTOPRAZOLE SODIUM
  3. FLUTACASONE PROPIONATE [Concomitant]

REACTIONS (3)
  - Oral discomfort [Unknown]
  - Burning mouth syndrome [Unknown]
  - Glossodynia [Unknown]

NARRATIVE: CASE EVENT DATE: 20150202
